FAERS Safety Report 11995309 (Version 2)
Quarter: 2016Q1

REPORT INFORMATION
  Report Type: Spontaneous
  Country: US (occurrence: US)
  Receive Date: 20160203
  Receipt Date: 20160211
  Transmission Date: 20160526
  Serious: No
  Sender: FDA-Public Use
  Company Number: US-BAYER-2016-020079

PATIENT
  Age: 5 Year
  Sex: Male

DRUGS (2)
  1. CLARITIN REDITABS [Suspect]
     Active Substance: LORATADINE
     Indication: COUGH
     Dosage: UNK
  2. CLARITIN REDITABS [Suspect]
     Active Substance: LORATADINE
     Indication: COUGH
     Dosage: 4 DF, ONCE
     Route: 048
     Dates: start: 20160130, end: 20160130

REACTIONS (2)
  - Accidental exposure to product by child [None]
  - Off label use [None]

NARRATIVE: CASE EVENT DATE: 20160130
